FAERS Safety Report 7799577-8 (Version None)
Quarter: 2011Q4

REPORT INFORMATION
  Report Type: 
  Country: None (occurrence: None)
  Receive Date: 20111006
  Receipt Date: 20110928
  Transmission Date: 20120403
  Serious: Yes (Other)
  Sender: FDA-Public Use
  Company Number: AU-AMGEN-AUSSP2011026128

PATIENT
  Age: 35 Year
  Sex: Male

DRUGS (4)
  1. FOLIC ACID [Concomitant]
  2. NEUPOGEN [Suspect]
     Dosage: UNK
  3. VITAMIN B COMPLEX CAP [Concomitant]
  4. NEUPOGEN [Suspect]
     Indication: UNRELATED DONOR BONE MARROW TRANSPLANTATION THERAPY
     Dosage: 2700 MUG, QD
     Dates: start: 20101028

REACTIONS (4)
  - HYPERHIDROSIS [None]
  - OEDEMA PERIPHERAL [None]
  - SKIN EXFOLIATION [None]
  - AGITATION [None]
